FAERS Safety Report 11179397 (Version 2)
Quarter: 2015Q3

REPORT INFORMATION
  Report Type: Report from Study
  Country: BR (occurrence: BR)
  Receive Date: 20150611
  Receipt Date: 20150715
  Transmission Date: 20151125
  Serious: Yes (Other)
  Sender: FDA-Public Use
  Company Number: PHHY2015BR067347

PATIENT
  Age: 86 Year
  Sex: Female
  Weight: 67 kg

DRUGS (8)
  1. SEROQUEL XR [Concomitant]
     Active Substance: QUETIAPINE FUMARATE
     Indication: DEMENTIA ALZHEIMER^S TYPE
     Dosage: 1 DF, AT NIGHT
     Route: 048
     Dates: start: 20150212
  2. CITONEURIN                         /00499701/ [Concomitant]
     Indication: PRODUCT USED FOR UNKNOWN INDICATION
     Dosage: 1 DF, QD
     Route: 048
  3. SEROQUEL [Concomitant]
     Active Substance: QUETIAPINE FUMARATE
     Indication: DEMENTIA ALZHEIMER^S TYPE
     Dosage: 0.5 DF, IN THE MORNING
     Route: 048
     Dates: start: 20150212
  4. EXELON PATCH [Suspect]
     Active Substance: RIVASTIGMINE
     Dosage: PATCH 5 (CM2)
     Route: 062
     Dates: start: 20150212
  5. EXELON PATCH [Suspect]
     Active Substance: RIVASTIGMINE
     Indication: DEMENTIA ALZHEIMER^S TYPE
     Dosage: 2 PATCHES
     Route: 062
  6. CARDIZEM [Concomitant]
     Active Substance: DILTIAZEM HYDROCHLORIDE
     Indication: CARDIAC DISORDER
     Dosage: 1 DF, QD
     Route: 048
  7. CARDIZEM [Concomitant]
     Active Substance: DILTIAZEM HYDROCHLORIDE
     Indication: HYPERTENSION
  8. ACETYLCYSTEINE. [Concomitant]
     Active Substance: ACETYLCYSTEINE
     Indication: COUGH
     Dosage: 1 DF (1 SACHET A DAY DILUTED IN WATER), QD
     Route: 048

REACTIONS (7)
  - Somnolence [Not Recovered/Not Resolved]
  - Abnormal behaviour [Recovered/Resolved]
  - Suicidal ideation [Recovered/Resolved]
  - Panic reaction [Recovered/Resolved]
  - Hypoglycaemia [Recovered/Resolved]
  - Hallucination [Recovered/Resolved]
  - Hallucination [Recovered/Resolved]

NARRATIVE: CASE EVENT DATE: 201402
